FAERS Safety Report 26091163 (Version 1)
Quarter: 2025Q4

REPORT INFORMATION
  Report Type: Spontaneous
  Country: US (occurrence: US)
  Receive Date: 20251126
  Receipt Date: 20251126
  Transmission Date: 20260117
  Serious: No
  Sender: JOHNSON AND JOHNSON
  Company Number: US-JNJFOC-20251164694

PATIENT
  Age: 48 Year
  Sex: Female

DRUGS (2)
  1. SPRAVATO [Suspect]
     Active Substance: ESKETAMINE
     Indication: Post-traumatic stress disorder
     Route: 045
  2. SPRAVATO [Suspect]
     Active Substance: ESKETAMINE
     Indication: Depression
     Route: 045
     Dates: start: 20250808, end: 20251112

REACTIONS (7)
  - Therapeutic response unexpected [Unknown]
  - Drug ineffective [Unknown]
  - Arthralgia [Unknown]
  - Dry mouth [Unknown]
  - Headache [Unknown]
  - Dermatitis [Unknown]
  - Rash [Unknown]
